FAERS Safety Report 8726223 (Version 3)
Quarter: 2012Q4

REPORT INFORMATION
  Report Type: 
  Country: CH (occurrence: CH)
  Receive Date: 20120816
  Receipt Date: 20120905
  Transmission Date: 20130627
  Serious: Yes (Other)
  Sender: FDA-Public Use
  Company Number: CH-PFIZER INC-2012195233

PATIENT
  Age: 74 Year
  Sex: Female

DRUGS (4)
  1. GENOTROPIN [Suspect]
     Dosage: 0.4 mg per day
     Dates: start: 20011009
  2. GENOTROPIN [Suspect]
     Dosage: 0.3 mg per day
  3. ASPIRINE [Concomitant]
     Dosage: 100 mg per day
     Dates: start: 20090101
  4. CITALOPRAM HYDROBROMIDE [Concomitant]
     Dosage: 20 mg, 1x/day
     Dates: start: 20110208

REACTIONS (1)
  - Fracture [Recovered/Resolved with Sequelae]
